FAERS Safety Report 7440342-9 (Version None)
Quarter: 2011Q2

REPORT INFORMATION
  Report Type: 
  Country: None (occurrence: None)
  Receive Date: 20110427
  Receipt Date: 20110422
  Transmission Date: 20111010
  Serious: Yes (Hospitalization, Other)
  Sender: FDA-Public Use
  Company Number: US-MERCK-1010USA02557

PATIENT
  Age: 50 Year
  Sex: Female
  Weight: 67 kg

DRUGS (6)
  1. CALCIUM (UNSPECIFIED) [Concomitant]
     Indication: OSTEOPENIA
     Route: 065
     Dates: start: 20050224
  2. VITAMINS (UNSPECIFIED) [Concomitant]
     Route: 065
  3. FOSAMAX [Suspect]
     Indication: OSTEOPENIA
     Route: 048
     Dates: start: 20060905, end: 20090401
  4. ALENDRONATE SODIUM [Suspect]
     Indication: OSTEOPENIA
     Route: 048
     Dates: start: 20080401, end: 20090101
  5. VITAMIN D (UNSPECIFIED) [Concomitant]
     Indication: OSTEOPENIA
     Route: 048
     Dates: start: 20050224
  6. NEURONTIN [Concomitant]
     Indication: TRIGEMINAL NEURALGIA
     Route: 065
     Dates: start: 20001125

REACTIONS (36)
  - FEMUR FRACTURE [None]
  - IMPAIRED HEALING [None]
  - RASH [None]
  - NECK MASS [None]
  - TOOTH ABSCESS [None]
  - HAEMORRHAGIC ANAEMIA [None]
  - TIBIA FRACTURE [None]
  - LUNG NEOPLASM [None]
  - LOW TURNOVER OSTEOPATHY [None]
  - HAEMATOMA [None]
  - TOOTHACHE [None]
  - STRESS [None]
  - MUSCULOSKELETAL CHEST PAIN [None]
  - RIB FRACTURE [None]
  - DEPRESSION [None]
  - SCIATICA [None]
  - PAIN IN EXTREMITY [None]
  - FATIGUE [None]
  - CHEILITIS [None]
  - STRESS FRACTURE [None]
  - MULTIPLE MYELOMA [None]
  - ADVERSE DRUG REACTION [None]
  - MIGRAINE [None]
  - LABILE HYPERTENSION [None]
  - ENTHESOPATHY [None]
  - OSTEOARTHRITIS [None]
  - FRACTURE NONUNION [None]
  - CARBON DIOXIDE INCREASED [None]
  - ARTHRALGIA [None]
  - ORTHOSTATIC HYPOTENSION [None]
  - DEVICE FAILURE [None]
  - INTERVERTEBRAL DISC PROTRUSION [None]
  - CONSTIPATION [None]
  - GASTROOESOPHAGEAL REFLUX DISEASE [None]
  - RECTAL HAEMORRHAGE [None]
  - FALL [None]
